FAERS Safety Report 8601954-X (Version None)
Quarter: 2012Q3

REPORT INFORMATION
  Report Type: 
  Country: None (occurrence: None)
  Receive Date: 20120817
  Receipt Date: 20120619
  Transmission Date: 20120928
  Serious: No
  Sender: FDA-Public Use
  Company Number: US-BRISTOL-MYERS SQUIBB COMPANY-16671307

PATIENT
  Sex: Female

DRUGS (1)
  1. SPRYCEL [Suspect]
     Indication: CHRONIC MYELOID LEUKAEMIA
     Dosage: 10 DAYS POST SURGERY STARTED THE DRUG INCREASED DOSE ON 06MAY12
     Dates: start: 20120101

REACTIONS (1)
  - MEMORY IMPAIRMENT [None]
